FAERS Safety Report 6812996-9 (Version None)
Quarter: 2010Q3

REPORT INFORMATION
  Report Type: 
  Country: None (occurrence: None)
  Receive Date: 20100701
  Receipt Date: 20100601
  Transmission Date: 20110219
  Serious: Yes (Other)
  Sender: FDA-Public Use
  Company Number: US-PFIZER INC-2010068241

PATIENT
  Sex: Female
  Weight: 113 kg

DRUGS (6)
  1. CELEBREX [Suspect]
     Indication: ARTHRITIS
     Dosage: UNK
     Dates: start: 20100401, end: 20100501
  2. CELEBREX [Suspect]
     Indication: FIBROMYALGIA
     Dosage: 200 MG, 2X/DAY
     Dates: start: 20100507, end: 20100501
  3. METFORMIN [Concomitant]
     Indication: DIABETES MELLITUS
     Dosage: 1000 MG, UNK
  4. ACTOS [Concomitant]
     Indication: DIABETES MELLITUS
     Dosage: UNK
  5. ATENOLOL/HYDROCHLOROTHIAZIDE [Concomitant]
     Indication: HYPERTENSION
     Dosage: UNK
  6. GLIPIZIDE [Concomitant]
     Indication: DIABETES MELLITUS
     Dosage: UNK

REACTIONS (4)
  - CHAPPED LIPS [None]
  - DRUG INEFFECTIVE [None]
  - HYPOAESTHESIA ORAL [None]
  - LIP SWELLING [None]
